FAERS Safety Report 5021971-9 (Version None)
Quarter: 2006Q2

REPORT INFORMATION
  Report Type: 
  Country: None (occurrence: None)
  Receive Date: 20060609
  Receipt Date: 20060605
  Transmission Date: 20061013
  Serious: Yes (Death)
  Sender: FDA-Public Use
  Company Number: US-JNJFOC-20060503756

PATIENT
  Age: 32 Year
  Sex: Female

DRUGS (10)
  1. TYLENOL (CAPLET) [Suspect]
     Indication: DRUG USE FOR UNKNOWN INDICATION
  2. NYQUIL [Suspect]
  3. NYQUIL [Suspect]
  4. NYQUIL [Suspect]
  5. NYQUIL [Suspect]
  6. NYQUIL [Suspect]
     Indication: DRUG USE FOR UNKNOWN INDICATION
  7. DAYQUIL [Suspect]
  8. DAYQUIL [Suspect]
  9. DAYQUIL [Suspect]
  10. DAYQUIL [Suspect]
     Indication: DRUG USE FOR UNKNOWN INDICATION

REACTIONS (2)
  - ACCIDENTAL OVERDOSE [None]
  - DRUG ADMINISTRATION ERROR [None]
